FAERS Safety Report 20658291 (Version 1)
Quarter: 2022Q1

REPORT INFORMATION
  Report Type: Spontaneous
  Country: US (occurrence: None)
  Receive Date: 20220331
  Receipt Date: 20220331
  Transmission Date: 20220423
  Serious: No
  Sender: FDA-Public Use
  Company Number: 2022A120437

PATIENT
  Weight: 81.6 kg

DRUGS (1)
  1. BUDESONIDE\FORMOTEROL [Suspect]
     Active Substance: BUDESONIDE\FORMOTEROL
     Indication: Asthma
     Dosage: 160/4.5 2 PUFFS TWICE A DAY
     Route: 055

REACTIONS (6)
  - Malaise [Unknown]
  - Feeling abnormal [Unknown]
  - Sinus disorder [Unknown]
  - Wheezing [Unknown]
  - Lung disorder [Unknown]
  - Cough [Unknown]
